FAERS Safety Report 6000172-1 (Version None)
Quarter: 2008Q4

REPORT INFORMATION
  Report Type: 
  Country: None (occurrence: None)
  Receive Date: 20081211
  Receipt Date: 20081211
  Transmission Date: 20090506
  Serious: No
  Sender: FDA-Public Use
  Company Number: None

PATIENT
  Age: 57 Year
  Sex: Male
  Weight: 131.5431 kg

DRUGS (7)
  1. LANTUS [Suspect]
     Indication: DIABETES MELLITUS
     Dosage: 60 UNITS SC QHS
     Route: 058
     Dates: start: 20080201
  2. METFORMIN HCL [Concomitant]
  3. LIPITOR [Concomitant]
  4. ACTOS [Concomitant]
  5. ZETIA [Concomitant]
  6. BENAZEPRIL HYDROCHLORIDE [Concomitant]
  7. PROZAC [Concomitant]

REACTIONS (2)
  - BLOOD GLUCOSE INCREASED [None]
  - MUSCLE SPASMS [None]
